FAERS Safety Report 23634629 (Version 2)
Quarter: 2024Q2

REPORT INFORMATION
  Report Type: Report from Study
  Country: US (occurrence: US)
  Receive Date: 20240315
  Receipt Date: 20240430
  Transmission Date: 20240716
  Serious: Yes (Hospitalization, Other)
  Sender: FDA-Public Use
  Company Number: US-JNJFOC-20240335320

PATIENT
  Age: 22 Year
  Sex: Female
  Weight: 127.57 kg

DRUGS (2)
  1. SPRAVATO [Suspect]
     Active Substance: ESKETAMINE
     Indication: Depression
     Dosage: ^56 MG, 10 TOTAL DOSES^
     Dates: start: 20230530, end: 20230808
  2. SPRAVATO [Suspect]
     Active Substance: ESKETAMINE
     Dosage: ^84 MG, 8 TOTAL DOSES^
     Dates: start: 20230825, end: 20240105

REACTIONS (2)
  - Hospitalisation [Unknown]
  - Drug abuse [Unknown]
